FAERS Safety Report 23507317 (Version 3)
Quarter: 2024Q3

REPORT INFORMATION
  Report Type: Spontaneous
  Country: FR (occurrence: FR)
  Receive Date: 20240209
  Receipt Date: 20240729
  Transmission Date: 20241017
  Serious: Yes (Life-Threatening, Hospitalization)
  Sender: MYLAN
  Company Number: None

PATIENT
  Age: 71 Year
  Sex: Male
  Weight: 118 kg

DRUGS (18)
  1. OXYCODONE [Suspect]
     Active Substance: OXYCODONE
     Indication: Pain
     Dosage: 20 MILLIGRAM, QD (VARIABLE)
     Route: 048
     Dates: end: 20231226
  2. OXYCODONE [Suspect]
     Active Substance: OXYCODONE
     Indication: Pain
     Dosage: 5 MILLIGRAM, QD (IN CASE OF PAIN, TAKE ONE CAPSULE.)
     Route: 048
  3. METOPIMAZINE [Suspect]
     Active Substance: METOPIMAZINE
     Indication: Vomiting
     Dosage: 22.5 MILLIGRAM, QD
     Route: 048
     Dates: end: 20231226
  4. METOPIMAZINE [Suspect]
     Active Substance: METOPIMAZINE
     Dosage: 7.5 MILLIGRAM, QD
     Route: 048
  5. MESTINON [Suspect]
     Active Substance: PYRIDOSTIGMINE BROMIDE
     Indication: Product used for unknown indication
     Dosage: 2 DOSAGE FORM, QD
     Route: 048
     Dates: end: 20231226
  6. MESTINON [Suspect]
     Active Substance: PYRIDOSTIGMINE BROMIDE
     Dosage: 120 MILLIGRAM, QD
     Route: 048
  7. MOVICOL [Suspect]
     Active Substance: POLYETHYLENE GLYCOL 3350\POTASSIUM CHLORIDE\SODIUM BICARBONATE\SODIUM CHLORIDE
     Indication: Constipation
     Dosage: 2 DOSAGE FORM, QD (2 SACHETS IN THE MORNING)
     Route: 048
     Dates: end: 20231226
  8. ERLEADA [Suspect]
     Active Substance: APALUTAMIDE
     Indication: Prostate cancer
     Dosage: 240 MILLIGRAM, QD
     Route: 048
     Dates: start: 20231109, end: 20231224
  9. METFORMIN HYDROCHLORIDE [Concomitant]
     Active Substance: METFORMIN HYDROCHLORIDE
     Indication: Diabetes mellitus
     Dosage: 1 GRAM, QD
     Route: 048
     Dates: end: 20231226
  10. Decapeptyl [Concomitant]
     Dosage: 1 DOSAGE FORM, Q3MONTHS
     Route: 058
  11. Decapeptyl [Concomitant]
     Dosage: 11.25 MILLIGRAM, Q3MONTHS
     Route: 058
  12. HYDROCHLOROTHIAZIDE\IRBESARTAN [Concomitant]
     Active Substance: HYDROCHLOROTHIAZIDE\IRBESARTAN
     Dosage: 1 DOSAGE FORM, QD (300/25 IN THE MORNING)
     Route: 048
  13. ACETAMINOPHEN [Concomitant]
     Active Substance: ACETAMINOPHEN
     Dosage: 3 GRAM, QD
     Route: 048
  14. LERCANIDIPINE HYDROCHLORIDE [Concomitant]
     Active Substance: LERCANIDIPINE HYDROCHLORIDE
     Dosage: 10 MILLIGRAM, QD
     Route: 048
     Dates: end: 20231226
  15. AMILORIDE HYDROCHLORIDE [Concomitant]
     Active Substance: AMILORIDE HYDROCHLORIDE
     Dosage: 1 DOSAGE FORM, QD
     Route: 048
     Dates: end: 20231226
  16. AMILORIDE HYDROCHLORIDE [Concomitant]
     Active Substance: AMILORIDE HYDROCHLORIDE
     Dosage: 5 MILLIGRAM, QD
     Route: 048
  17. ALDOMET [Concomitant]
     Active Substance: METHYLDOPA
     Dosage: 1 DOSAGE FORM, QD
     Route: 048
     Dates: end: 20231226
  18. ALDOMET [Concomitant]
     Active Substance: METHYLDOPA
     Dosage: 500 MILLIGRAM, QD
     Route: 048

REACTIONS (3)
  - Agranulocytosis [Recovered/Resolved]
  - Rash maculo-papular [Recovered/Resolved]
  - Intestinal transit time decreased [Recovered/Resolved]

NARRATIVE: CASE EVENT DATE: 20231201
